FAERS Safety Report 11943852 (Version 1)
Quarter: 2016Q1

REPORT INFORMATION
  Report Type: Spontaneous
  Country: US (occurrence: US)
  Receive Date: 20160125
  Receipt Date: 20160125
  Transmission Date: 20160526
  Serious: No
  Sender: FDA-Public Use
  Company Number: US-UNITED THERAPEUTICS-UNT-2015-013671

PATIENT
  Age: 18 Year
  Sex: Female
  Weight: 55.33 kg

DRUGS (3)
  1. ADCIRCA [Concomitant]
     Active Substance: TADALAFIL
     Indication: PRODUCT USED FOR UNKNOWN INDICATION
  2. REMODULIN [Suspect]
     Active Substance: TREPROSTINIL
     Indication: PULMONARY ARTERIAL HYPERTENSION
     Dosage: 0.120 ?G/KG/MIN, CONTINUING
     Route: 058
     Dates: start: 20130418
  3. LETAIRIS [Concomitant]
     Active Substance: AMBRISENTAN
     Indication: PRODUCT USED FOR UNKNOWN INDICATION

REACTIONS (4)
  - Infusion site rash [Recovering/Resolving]
  - Infusion site vesicles [Unknown]
  - Infusion site pain [Unknown]
  - Infusion site discharge [Unknown]

NARRATIVE: CASE EVENT DATE: 20151022
